FAERS Safety Report 5762047-2 (Version None)
Quarter: 2008Q2

REPORT INFORMATION
  Report Type: 
  Country: None (occurrence: None)
  Receive Date: 20080603
  Receipt Date: 20080521
  Transmission Date: 20081010
  Serious: Yes (Hospitalization)
  Sender: FDA-Public Use
  Company Number: MEDI-0006710

PATIENT
  Age: 1 Month
  Sex: Male
  Weight: 7.9 kg

DRUGS (5)
  1. SYNAGIS [Suspect]
     Dosage: 15 MG/KG, 1 IN 1 M; 15 MG/KG, 1 IN 1 M; 15 MG/KG, 1 IN 1 M
     Dates: start: 20071005, end: 20071005
  2. SYNAGIS [Suspect]
     Dosage: 15 MG/KG, 1 IN 1 M; 15 MG/KG, 1 IN 1 M; 15 MG/KG, 1 IN 1 M
     Dates: start: 20071101
  3. SYNAGIS [Suspect]
     Dosage: 15 MG/KG, 1 IN 1 M; 15 MG/KG, 1 IN 1 M; 15 MG/KG, 1 IN 1 M
     Dates: start: 20071207
  4. DOMPERIDONE (DOMPERIDONE) [Concomitant]
  5. AMINOPHYLLIN [Concomitant]

REACTIONS (6)
  - DEHYDRATION [None]
  - FOOD INTOLERANCE [None]
  - GASTROENTERITIS [None]
  - ILEUS [None]
  - ORAL INTAKE REDUCED [None]
  - VIRAL INFECTION [None]
